FAERS Safety Report 9778152 (Version 1)
Quarter: 2013Q4

REPORT INFORMATION
  Report Type: Report from Study
  Country: GB (occurrence: GB)
  Receive Date: 20131223
  Receipt Date: 20131223
  Transmission Date: 20140711
  Serious: Yes (Hospitalization)
  Sender: FDA-Public Use
  Company Number: GB-009507513-1312GBR009385

PATIENT
  Age: 56 Year
  Sex: Male

DRUGS (2)
  1. VORINOSTAT [Suspect]
     Indication: PLASMA CELL MYELOMA
     Dosage: 300 MG, DAY 1-7, 15-21
     Route: 048
     Dates: start: 20130819
  2. LENALIDOMIDE [Suspect]
     Indication: PLASMA CELL MYELOMA
     Dosage: 5 MG, QOD X 21 DAYS
     Route: 048
     Dates: start: 20130819

REACTIONS (1)
  - Lower respiratory tract infection [Recovered/Resolved]
